FAERS Safety Report 24540124 (Version 1)
Quarter: 2024Q4

REPORT INFORMATION
  Report Type: Spontaneous
  Country: US (occurrence: US)
  Receive Date: 20241023
  Receipt Date: 20241023
  Transmission Date: 20250115
  Serious: No
  Sender: COVIS PHARMA GMBH
  Company Number: US-Covis Pharma GmbH-2024COV01190

PATIENT
  Sex: Female

DRUGS (1)
  1. OMNARIS [Suspect]
     Active Substance: CICLESONIDE
     Indication: Dizziness
     Route: 045

REACTIONS (10)
  - Panic attack [Unknown]
  - Nausea [Unknown]
  - Malaise [Unknown]
  - Mood altered [Unknown]
  - Facial pain [Unknown]
  - Throat tightness [Unknown]
  - Pruritus [Unknown]
  - Headache [Unknown]
  - Exposure via skin contact [Unknown]
  - Product dose omission issue [Unknown]
